FAERS Safety Report 5873929-5 (Version None)
Quarter: 2008Q3

REPORT INFORMATION
  Report Type: 
  Country: None (occurrence: None)
  Receive Date: 20080908
  Receipt Date: 20080620
  Transmission Date: 20090109
  Serious: Yes (Other)
  Sender: FDA-Public Use
  Company Number: US-AMGEN-KDL272844

PATIENT
  Sex: Female
  Weight: 68.6 kg

DRUGS (10)
  1. VECTIBIX [Suspect]
     Indication: COLORECTAL CANCER
     Route: 042
     Dates: start: 20080220, end: 20080220
  2. DECADRON SRC [Concomitant]
     Route: 065
     Dates: start: 20071128
  3. PREDNISONE TAB [Concomitant]
     Route: 048
     Dates: start: 20080326
  4. BUMEX [Concomitant]
     Route: 048
     Dates: start: 20080414
  5. FLEXERIL [Concomitant]
     Route: 048
     Dates: start: 20080212
  6. LORTAB [Concomitant]
     Route: 048
  7. XANAX [Concomitant]
     Route: 048
     Dates: start: 20080404
  8. COMPAZINE [Concomitant]
     Route: 048
     Dates: start: 20071128
  9. PHENERGAN HCL [Concomitant]
     Route: 048
     Dates: start: 20071004
  10. ZANTAC [Concomitant]
     Route: 065
     Dates: start: 20080418

REACTIONS (4)
  - ERYTHEMA [None]
  - RASH [None]
  - SWELLING [None]
  - TENDERNESS [None]
